FAERS Safety Report 15965375 (Version 4)
Quarter: 2019Q3

REPORT INFORMATION
  Report Type: Spontaneous
  Country: US (occurrence: US)
  Receive Date: 20190215
  Receipt Date: 20190925
  Transmission Date: 20191004
  Serious: Yes (Other)
  Sender: FDA-Public Use
  Company Number: US-ROCHE-2265730

PATIENT
  Age: 79 Year
  Sex: Female
  Weight: 81.72 kg

DRUGS (4)
  1. LUCENTIS [Suspect]
     Active Substance: RANIBIZUMAB
     Indication: NEOVASCULAR AGE-RELATED MACULAR DEGENERATION
     Dosage: LAST INJECTION: 24-JAN-2019
     Route: 031
     Dates: start: 201806
  2. LOSARTAN. [Concomitant]
     Active Substance: LOSARTAN
     Route: 065
  3. LUCENTIS [Suspect]
     Active Substance: RANIBIZUMAB
     Route: 031
  4. XIIDRA [Concomitant]
     Active Substance: LIFITEGRAST
     Dosage: ONGOING: YES
     Route: 065

REACTIONS (9)
  - Eye haemorrhage [Recovered/Resolved]
  - Visual impairment [Unknown]
  - Inflammation [Unknown]
  - Neovascular age-related macular degeneration [Unknown]
  - Trigeminal neuralgia [Not Recovered/Not Resolved]
  - Nasal dryness [Unknown]
  - Injection site paraesthesia [Unknown]
  - Alopecia [Not Recovered/Not Resolved]
  - Vitreous floaters [Recovering/Resolving]

NARRATIVE: CASE EVENT DATE: 20190124
